FAERS Safety Report 7326955-3 (Version None)
Quarter: 2011Q1

REPORT INFORMATION
  Report Type: 
  Country: None (occurrence: None)
  Receive Date: 20110302
  Receipt Date: 20110228
  Transmission Date: 20110831
  Serious: Yes (Hospitalization)
  Sender: FDA-Public Use
  Company Number: IT-PFIZER INC-2010036979

PATIENT
  Age: 59 Year
  Sex: Male
  Weight: 82 kg

DRUGS (5)
  1. LEVOTHYROXINE [Concomitant]
     Indication: HYPOTHYROIDISM
  2. ADALAT [Concomitant]
     Indication: HYPERTENSION
  3. SUNITINIB MALATE [Suspect]
     Dosage: 37.5 MG ONCE DAILY
     Dates: start: 20080827, end: 20100208
  4. SUNITINIB MALATE [Suspect]
     Indication: RENAL CELL CARCINOMA
     Dosage: 50 MG, 1X/DAY
     Route: 048
     Dates: start: 20070205, end: 20080801
  5. BISOPROLOL [Concomitant]
     Indication: HYPERTENSION

REACTIONS (1)
  - PERICARDITIS [None]
